FAERS Safety Report 9771984 (Version 1)
Quarter: 2013Q4

REPORT INFORMATION
  Report Type: Report from Study
  Country: BE (occurrence: BE)
  Receive Date: 20131219
  Receipt Date: 20131219
  Transmission Date: 20140711
  Serious: Yes (Hospitalization)
  Sender: FDA-Public Use
  Company Number: BE-BAYER-2013-154992

PATIENT
  Sex: 0

DRUGS (1)
  1. BETAFERON [Suspect]
     Dosage: UNK
     Dates: start: 201009

REACTIONS (1)
  - Multiple sclerosis relapse [None]
